FAERS Safety Report 4340420-7 (Version None)
Quarter: 2004Q2

REPORT INFORMATION
  Report Type: 
  Country: None (occurrence: None)
  Receive Date: 20040414
  Receipt Date: 20040406
  Transmission Date: 20050107
  Serious: No
  Sender: FDA-Public Use
  Company Number: 04P-087-0256057-00

PATIENT
  Age: 65 Year
  Sex: Male

DRUGS (7)
  1. ISOPTIN [Suspect]
     Indication: SINUS TACHYCARDIA
     Dosage: 80 MG, 1 IN 1 D, PER ORAL
     Route: 048
     Dates: start: 20030529
  2. SULPIRIDE [Suspect]
     Dosage: 0.45 GM, 1 IN 1 D, PER ORAL
     Route: 048
     Dates: start: 20030707
  3. NIFEDIPINE [Concomitant]
  4. AMOXAPINE [Concomitant]
  5. U-PAN [Concomitant]
  6. CARBAMAZEPINE [Concomitant]
  7. COLONEL [Concomitant]

REACTIONS (3)
  - GYNAECOMASTIA [None]
  - INDURATION [None]
  - PAIN [None]
